FAERS Safety Report 4530782-X (Version None)
Quarter: 2004Q4

REPORT INFORMATION
  Report Type: 
  Country: None (occurrence: None)
  Receive Date: 20041216
  Receipt Date: 20041130
  Transmission Date: 20050328
  Serious: Yes (Hospitalization, Disabling)
  Sender: FDA-Public Use
  Company Number: JP_041105018

PATIENT
  Age: 89 Year
  Sex: Female

DRUGS (8)
  1. EVISTA [Suspect]
     Indication: OSTEOPOROSIS
     Dosage: 60 MG DAY
     Dates: start: 20040706, end: 20041009
  2. PREDNISOLONE [Concomitant]
  3. SEPAMIT (NIFEDIPINE PA) [Concomitant]
  4. ALFAROL (ALFACALCIDOL) [Concomitant]
  5. PURSENNID [Concomitant]
  6. THEO-DUR [Concomitant]
  7. MUCOSTA (REBAMIPIDE) [Concomitant]
  8. EURODIN (ESTAZOLAM) [Concomitant]

REACTIONS (3)
  - CEREBRAL INFARCTION [None]
  - COMPUTERISED TOMOGRAM ABNORMAL [None]
  - THROMBOSIS [None]
